FAERS Safety Report 6898067-4 (Version None)
Quarter: 2010Q3

REPORT INFORMATION
  Report Type: 
  Country: None (occurrence: None)
  Receive Date: 20100802
  Receipt Date: 20070821
  Transmission Date: 20110219
  Serious: No
  Sender: FDA-Public Use
  Company Number: US-PFIZER INC-2007052105

PATIENT
  Sex: Male
  Weight: 76.2 kg

DRUGS (14)
  1. LYRICA [Suspect]
     Indication: NEURALGIA
     Dates: start: 20070401, end: 20070401
  2. LYRICA [Suspect]
     Indication: NEUROPATHY PERIPHERAL
  3. GABAPENTIN [Suspect]
     Indication: NEURALGIA
     Dates: start: 20070501
  4. NORVASC [Concomitant]
  5. LIPITOR [Concomitant]
  6. ZOLOFT [Concomitant]
  7. NEXIUM [Concomitant]
  8. ACETYLSALICYLIC ACID SRT [Concomitant]
  9. MULTI-VITAMINS [Concomitant]
  10. CALCIUM [Concomitant]
  11. VITAMIN B [Concomitant]
  12. ASCORBIC ACID [Concomitant]
  13. OMEGA [Concomitant]
  14. FISH OIL [Concomitant]

REACTIONS (3)
  - DRUG INEFFECTIVE [None]
  - PAIN [None]
  - SOMNOLENCE [None]
